FAERS Safety Report 6807386-9 (Version None)
Quarter: 2010Q2

REPORT INFORMATION
  Report Type: 
  Country: None (occurrence: None)
  Receive Date: 20100629
  Receipt Date: 20080911
  Transmission Date: 20101027
  Serious: No
  Sender: FDA-Public Use
  Company Number: US-PFIZER INC-2008066961

PATIENT
  Sex: Male
  Weight: 84.09 kg

DRUGS (9)
  1. REVATIO [Suspect]
     Indication: PULMONARY HYPERTENSION
     Dates: start: 20060930
  2. VIAGRA [Suspect]
     Dates: start: 20060830, end: 20060930
  3. AMBRISENTAN [Concomitant]
  4. PROCATEROL HCL [Concomitant]
  5. PROTONIX [Concomitant]
  6. SPIRONOLACTONE [Concomitant]
  7. PROPRANOLOL [Concomitant]
  8. ZOLPIDEM [Concomitant]
  9. BELLADENAL [Concomitant]

REACTIONS (1)
  - HEPATIC PAIN [None]
